FAERS Safety Report 4513888-0 (Version None)
Quarter: 2004Q4

REPORT INFORMATION
  Report Type: 
  Country: None (occurrence: None)
  Receive Date: 20041130
  Receipt Date: 20040921
  Transmission Date: 20050328
  Serious: No
  Sender: FDA-Public Use
  Company Number: US-GLAXOSMITHKLINE-A0526706A

PATIENT
  Age: 40 Year
  Sex: Female
  Weight: 68.2 kg

DRUGS (1)
  1. WELLBUTRIN XL [Suspect]
     Indication: DEPRESSION
     Dosage: 300MG PER DAY
     Route: 048
     Dates: start: 20040915, end: 20040922

REACTIONS (3)
  - RASH [None]
  - RASH GENERALISED [None]
  - URTICARIA [None]
